FAERS Safety Report 22020682 (Version 1)
Quarter: 2023Q1

REPORT INFORMATION
  Report Type: Spontaneous
  Country: CA (occurrence: CA)
  Receive Date: 20230222
  Receipt Date: 20230222
  Transmission Date: 20230418
  Serious: Yes (Other)
  Sender: FDA-Public Use
  Company Number: CA-002147023-NVSC2023CA035525

PATIENT
  Age: 33 Year
  Sex: Female

DRUGS (12)
  1. MYCOPHENOLATE MOFETIL [Suspect]
     Active Substance: MYCOPHENOLATE MOFETIL
     Indication: Product used for unknown indication
     Dosage: UNK
     Route: 065
  2. METHOTREXATE [Suspect]
     Active Substance: METHOTREXATE
     Indication: Product used for unknown indication
     Dosage: UNK
     Route: 065
  3. METHOTREXATE [Suspect]
     Active Substance: METHOTREXATE
     Dosage: UNK
     Route: 065
  4. METHOTREXATE [Suspect]
     Active Substance: METHOTREXATE
     Dosage: UNK
     Route: 065
  5. CALCIUM [Concomitant]
     Active Substance: CALCIUM
     Indication: Product used for unknown indication
     Dosage: UNK
     Route: 065
  6. CYANOCOBALAMIN [Concomitant]
     Active Substance: CYANOCOBALAMIN
     Indication: Product used for unknown indication
     Dosage: UNK
     Route: 065
  7. IRON [Concomitant]
     Active Substance: IRON
     Indication: Product used for unknown indication
     Dosage: UNK
     Route: 065
  8. PREDNISONE [Concomitant]
     Active Substance: PREDNISONE
     Indication: Product used for unknown indication
     Dosage: 20 MG
     Route: 065
  9. PREDNISONE [Concomitant]
     Active Substance: PREDNISONE
     Dosage: 15 MG
     Route: 065
  10. PREDNISONE [Concomitant]
     Active Substance: PREDNISONE
     Dosage: 10 MG
     Route: 065
  11. PREDNISONE [Concomitant]
     Active Substance: PREDNISONE
     Dosage: 25 MG
     Route: 065
  12. PREDNISONE [Concomitant]
     Active Substance: PREDNISONE
     Dosage: 30 MG
     Route: 065

REACTIONS (12)
  - Antineutrophil cytoplasmic antibody positive [Not Recovered/Not Resolved]
  - Bronchial wall thickening [Not Recovered/Not Resolved]
  - Condition aggravated [Not Recovered/Not Resolved]
  - Epistaxis [Not Recovered/Not Resolved]
  - Glomerulonephritis rapidly progressive [Not Recovered/Not Resolved]
  - Haematuria [Not Recovered/Not Resolved]
  - Laryngeal stenosis [Not Recovered/Not Resolved]
  - Pulmonary cavitation [Not Recovered/Not Resolved]
  - Pulmonary mass [Not Recovered/Not Resolved]
  - Alopecia [Not Recovered/Not Resolved]
  - Drug ineffective [Not Recovered/Not Resolved]
  - Treatment failure [Not Recovered/Not Resolved]
